FAERS Safety Report 7595456-X (Version None)
Quarter: 2011Q3

REPORT INFORMATION
  Report Type: 
  Country: None (occurrence: None)
  Receive Date: 20110707
  Receipt Date: 20110627
  Transmission Date: 20111222
  Serious: Yes (Life-Threatening, Hospitalization)
  Sender: FDA-Public Use
  Company Number: FI-SANOFI-AVENTIS-2011SA041005

PATIENT
  Age: 77 Year
  Sex: Female

DRUGS (7)
  1. AMARYL [Suspect]
     Route: 048
     Dates: start: 20070901, end: 20110526
  2. SPIRONOLACTONE [Suspect]
     Indication: BLOOD PRESSURE
     Route: 048
     Dates: start: 20070901, end: 20110526
  3. PANADOL FORTE [Concomitant]
     Route: 048
  4. AMLODIPINE [Concomitant]
     Route: 048
  5. SPESICOR DOS [Concomitant]
     Route: 048
  6. JANUVIA [Concomitant]
     Route: 048
  7. ASPIRIN [Concomitant]
     Route: 048

REACTIONS (6)
  - SEPSIS [None]
  - BODY TEMPERATURE INCREASED [None]
  - LEUKOPENIA [None]
  - NEUTROPENIA [None]
  - AGRANULOCYTOSIS [None]
  - C-REACTIVE PROTEIN INCREASED [None]
